FAERS Safety Report 13681941 (Version 1)
Quarter: 2017Q2

REPORT INFORMATION
  Report Type: Spontaneous
  Country: US (occurrence: US)
  Receive Date: 20170623
  Receipt Date: 20170623
  Transmission Date: 20170830
  Serious: Yes (Life-Threatening, Hospitalization)
  Sender: FDA-Public Use
  Company Number: None

PATIENT
  Age: 8 Year
  Sex: Female
  Weight: 18 kg

DRUGS (1)
  1. SPINRAZA [Suspect]
     Active Substance: NUSINERSEN
     Indication: SPINAL MUSCULAR ATROPHY
     Dosage: DOSE AMOUNT - 12MG/5ML?DATES OF USE - 25JAN17, 8FEB17, 22FEB2017
     Route: 037
     Dates: start: 20170125, end: 20170208

REACTIONS (1)
  - Meningitis bacterial [None]

NARRATIVE: CASE EVENT DATE: 20170222
